FAERS Safety Report 12432290 (Version 1)
Quarter: 2016Q2

REPORT INFORMATION
  Report Type: Report from Study
  Country: DE (occurrence: DE)
  Receive Date: 20160603
  Receipt Date: 20160603
  Transmission Date: 20160815
  Serious: Yes (Other)
  Sender: FDA-Public Use
  Company Number: DE-VIFOR (INTERNATIONAL) INC.-VIT-2016-02590

PATIENT
  Age: 84 Year
  Sex: Male

DRUGS (1)
  1. MIRCERA [Suspect]
     Active Substance: METHOXY POLYETHYLENE GLYCOL-EPOETIN BETA
     Indication: NEPHROGENIC ANAEMIA
     Route: 058
     Dates: start: 20120415

REACTIONS (2)
  - Haemoglobin decreased [Recovered/Resolved]
  - Myelodysplastic syndrome [Recovered/Resolved]

NARRATIVE: CASE EVENT DATE: 20120618
